FAERS Safety Report 9246562 (Version 1)
Quarter: 2013Q2

REPORT INFORMATION
  Report Type: Report from Study
  Country: US (occurrence: US)
  Receive Date: 20130422
  Receipt Date: 20130422
  Transmission Date: 20140414
  Serious: No
  Sender: FDA-Public Use
  Company Number: US-ABBOTT-12P-163-1011967-00

PATIENT
  Age: 9 Year
  Sex: Female
  Weight: 100.79 kg

DRUGS (1)
  1. LUPRON DEPOT-PED [Suspect]
     Indication: PRECOCIOUS PUBERTY
     Dosage: MISSED DOSE BY 2 WKS IN SEP 2012
     Dates: start: 20120729

REACTIONS (2)
  - Metrorrhagia [Recovered/Resolved]
  - Inappropriate schedule of drug administration [Not Recovered/Not Resolved]
